FAERS Safety Report 10175877 (Version 1)
Quarter: 2014Q2

REPORT INFORMATION
  Report Type: Spontaneous
  Country: CH (occurrence: CH)
  Receive Date: 20140516
  Receipt Date: 20140516
  Transmission Date: 20141212
  Serious: Yes (Other)
  Sender: FDA-Public Use
  Company Number: CH-009507513-1405CHE004733

PATIENT
  Age: 76 Year
  Sex: Female
  Weight: 65 kg

DRUGS (8)
  1. DIPROPHOS [Suspect]
     Indication: SPINAL DISORDER
     Dosage: 7 MG, UNK
     Route: 013
     Dates: start: 20131125, end: 20131125
  2. PROLIA [Suspect]
     Indication: OSTEOPOROSIS POSTMENOPAUSAL
     Dosage: 60 MG, UNK
     Route: 058
     Dates: start: 20130227
  3. ARCOXIA [Concomitant]
     Dosage: UNK
     Route: 048
  4. COLCHICINE [Concomitant]
     Dosage: UNK
     Dates: start: 2010
  5. SIRDALUD MR [Concomitant]
     Dosage: UNK
  6. ROPIVACAINE [Concomitant]
     Dosage: UNK
     Dates: start: 20131125, end: 20131125
  7. LIDOCAINE [Concomitant]
     Dosage: UNK
  8. TRIAMCORT [Concomitant]
     Dosage: UNK

REACTIONS (3)
  - Osteoarthritis [Unknown]
  - General physical health deterioration [Recovered/Resolved]
  - Asthenia [Unknown]
